FAERS Safety Report 7641985-X (Version None)
Quarter: 2011Q3

REPORT INFORMATION
  Report Type: 
  Country: None (occurrence: None)
  Receive Date: 20110728
  Receipt Date: 20110727
  Transmission Date: 20111222
  Serious: Yes (Hospitalization)
  Sender: FDA-Public Use
  Company Number: ES-PFIZER INC-2011170617

PATIENT
  Age: 72 Year
  Sex: Female

DRUGS (10)
  1. TICLID [Concomitant]
     Indication: ISCHAEMIC CARDIOMYOPATHY
     Dosage: 250 MG, 1X/DAY
     Route: 048
     Dates: start: 20030101
  2. COROPRES [Concomitant]
     Indication: HYPERTENSION
     Dosage: 6.25 MG, 1X/DAY
     Route: 048
     Dates: start: 20030101
  3. FUROSEMIDE [Concomitant]
     Indication: CARDIAC FAILURE CONGESTIVE
     Dosage: 15 MG, 2X/DAY
     Route: 048
     Dates: start: 20090101
  4. CARDURA [Concomitant]
     Indication: HYPERTENSION
     Dosage: 4 MG, 1X/DAY
     Route: 048
     Dates: start: 20100101
  5. MAGNOGENE [Concomitant]
     Dosage: UNK
     Route: 048
     Dates: start: 20080501
  6. EXFORGE [Interacting]
     Indication: HYPERTENSION
     Dosage: 1 DF, 1X/DAY
     Route: 048
     Dates: start: 20100101, end: 20110104
  7. NOVOMIX [Concomitant]
     Indication: DIABETES MELLITUS
     Dosage: 17 IU/DAY
     Route: 058
     Dates: start: 20100101
  8. OXYCONTIN [Concomitant]
     Indication: PAIN
     Dosage: 7.5 MG, 2X/DAY
     Route: 048
     Dates: start: 20100101
  9. RISEDRONIC ACID [Concomitant]
     Indication: OSTEOPOROSIS
     Dosage: 35 MG, WEEKLY
     Route: 048
     Dates: start: 20080101
  10. ALDACTONE [Suspect]
     Indication: CARDIAC FAILURE CONGESTIVE
     Dosage: 25 MG, 1X/DAY
     Route: 048
     Dates: start: 20101101, end: 20110104

REACTIONS (5)
  - TREMOR [None]
  - DRUG INTERACTION [None]
  - HYPERKALAEMIA [None]
  - SOMNOLENCE [None]
  - DISORIENTATION [None]
